FAERS Safety Report 12169299 (Version 1)
Quarter: 2016Q1

REPORT INFORMATION
  Report Type: Spontaneous
  Country: RU (occurrence: RU)
  Receive Date: 20160310
  Receipt Date: 20160310
  Transmission Date: 20160526
  Serious: Yes (Other)
  Sender: FDA-Public Use
  Company Number: RU-BAYER-2016-041452

PATIENT
  Sex: Female

DRUGS (5)
  1. ASPIRIN CARDIO [Suspect]
     Active Substance: ASPIRIN
     Dosage: UNK
  2. HYDROXYPROGESTERONE CAPROATE. [Concomitant]
     Active Substance: HYDROXYPROGESTERONE CAPROATE
     Dosage: 2.5 %, BID
  3. PROGESTERONE. [Concomitant]
     Active Substance: PROGESTERONE
     Dosage: UNK
     Route: 067
  4. ELEVIT PRONATAL [Suspect]
     Active Substance: MINERALS\VITAMINS
  5. MEDROL [Concomitant]
     Active Substance: METHYLPREDNISOLONE
     Dosage: UNK

REACTIONS (3)
  - Vaginal haemorrhage [None]
  - Failed in vitro fertilisation [None]
  - Pelvic pain [Recovered/Resolved]
